FAERS Safety Report 12756427 (Version 1)
Quarter: 2016Q3

REPORT INFORMATION
  Report Type: Report from Study
  Country: US (occurrence: US)
  Receive Date: 20160916
  Receipt Date: 20160916
  Transmission Date: 20161109
  Serious: Yes (Hospitalization)
  Sender: FDA-Public Use
  Company Number: US-ASTRAZENECA-2016SE96692

PATIENT
  Age: 29010 Day
  Sex: Male
  Weight: 73.1 kg

DRUGS (10)
  1. LEVOTHYROXINE. [Concomitant]
     Active Substance: LEVOTHYROXINE
  2. GLUCOSAMINE-CHONDROITIN [Concomitant]
     Active Substance: CHONDROITIN SULFATE (BOVINE)\GLUCOSAMINE SULFATE
  3. TAMSULOSIN [Concomitant]
     Active Substance: TAMSULOSIN
  4. MEDI4736 [Suspect]
     Active Substance: DURVALUMAB
     Indication: PROSTATE CANCER
     Route: 042
     Dates: start: 20160509, end: 20160802
  5. OMEPRAZOLE. [Concomitant]
     Active Substance: OMEPRAZOLE
  6. ALLOPURINOL. [Concomitant]
     Active Substance: ALLOPURINOL
  7. MIRALAX [Concomitant]
     Active Substance: POLYETHYLENE GLYCOL 3350
  8. CALCIUM CARBONATE WITH VITAMIN D3 [Concomitant]
  9. METOPROLOL. [Concomitant]
     Active Substance: METOPROLOL
  10. OLAPARIB [Suspect]
     Active Substance: OLAPARIB
     Indication: PROSTATE CANCER
     Dosage: 250 MG TWICE A DAY
     Route: 048
     Dates: start: 20160509, end: 20160825

REACTIONS (2)
  - Febrile neutropenia [Unknown]
  - Hypotension [Unknown]

NARRATIVE: CASE EVENT DATE: 20160829
